FAERS Safety Report 6878677-0 (Version None)
Quarter: 2010Q3

REPORT INFORMATION
  Report Type: 
  Country: None (occurrence: None)
  Receive Date: 20100728
  Receipt Date: 20100723
  Transmission Date: 20110219
  Serious: Yes (Hospitalization)
  Sender: FDA-Public Use
  Company Number: B0651055A

PATIENT
  Sex: Female
  Weight: 100 kg

DRUGS (2)
  1. LAPATINIB [Suspect]
     Route: 065
     Dates: start: 20100316, end: 20100420
  2. VINORELBINE [Suspect]
     Route: 065
     Dates: start: 20100316, end: 20100420

REACTIONS (7)
  - CONFUSIONAL STATE [None]
  - DIARRHOEA [None]
  - DISEASE PROGRESSION [None]
  - ELECTROLYTE IMBALANCE [None]
  - INFECTION [None]
  - RESPIRATORY DISTRESS [None]
  - VOMITING [None]
